FAERS Safety Report 25900342 (Version 2)
Quarter: 2025Q4

REPORT INFORMATION
  Report Type: Spontaneous
  Country: IN (occurrence: IN)
  Receive Date: 20251009
  Receipt Date: 20251016
  Transmission Date: 20260117
  Serious: Yes (Other)
  Sender: SANOFI AVENTIS
  Company Number: IN-MLMSERVICE-20250923-PI650830-00108-1

PATIENT
  Age: 26 Year
  Sex: Female

DRUGS (11)
  1. RIFAMPIN [Interacting]
     Active Substance: RIFAMPIN
     Indication: Lymphadenitis
     Dosage: 600 MG, QD
  2. RIFAMPIN [Interacting]
     Active Substance: RIFAMPIN
     Indication: Lymph node tuberculosis
  3. CLOZAPINE [Interacting]
     Active Substance: CLOZAPINE
     Indication: Schizophrenia
     Dosage: 100 MG, QD,STABLE DOSE
  4. CLOZAPINE [Interacting]
     Active Substance: CLOZAPINE
     Dosage: 250 MG, QD, OVER 1.5 MONTHS
  5. FLUPENTIXOL [Concomitant]
     Active Substance: FLUPENTIXOL
     Indication: Schizophrenia
     Dosage: 20 MG, QOW,LONG-ACTING INJECTION
  6. ISONIAZID [Concomitant]
     Active Substance: ISONIAZID
     Indication: Lymphadenitis
     Dosage: 300 MG, QD
  7. ISONIAZID [Concomitant]
     Active Substance: ISONIAZID
     Indication: Lymph node tuberculosis
  8. PYRAZINAMIDE [Concomitant]
     Active Substance: PYRAZINAMIDE
     Indication: Lymphadenitis
     Dosage: 1600 MG, QD
  9. PYRAZINAMIDE [Concomitant]
     Active Substance: PYRAZINAMIDE
     Indication: Lymph node tuberculosis
  10. ETHAMBUTOL [Concomitant]
     Active Substance: ETHAMBUTOL HYDROCHLORIDE
     Indication: Lymphadenitis
     Dosage: 1100 MG, QD
  11. ETHAMBUTOL [Concomitant]
     Active Substance: ETHAMBUTOL HYDROCHLORIDE
     Indication: Lymph node tuberculosis

REACTIONS (4)
  - Drug interaction [Unknown]
  - Antipsychotic drug level decreased [Unknown]
  - Psychiatric symptom [Recovering/Resolving]
  - Condition aggravated [Recovering/Resolving]
